FAERS Safety Report 4972845-0 (Version None)
Quarter: 2006Q2

REPORT INFORMATION
  Report Type: 
  Country: None (occurrence: None)
  Receive Date: 20060414
  Receipt Date: 20060406
  Transmission Date: 20061013
  Serious: Yes (Other)
  Sender: FDA-Public Use
  Company Number: US-SP-2006-00816

PATIENT
  Age: 79 Year
  Sex: Female

DRUGS (1)
  1. THERACYS [Suspect]
     Indication: BLADDER CANCER
     Route: 043

REACTIONS (1)
  - HEPATIC ENZYME INCREASED [None]
